FAERS Safety Report 16628908 (Version 2)
Quarter: 2019Q3

REPORT INFORMATION
  Report Type: Spontaneous
  Country: US (occurrence: US)
  Receive Date: 20190725
  Receipt Date: 20190821
  Transmission Date: 20191004
  Serious: No
  Sender: FDA-Public Use
  Company Number: US-009507513-1907USA013633

PATIENT
  Sex: Female

DRUGS (1)
  1. NEXPLANON [Suspect]
     Active Substance: ETONOGESTREL
     Indication: CONTRACEPTION
     Dosage: 1 ROD, UNK
     Route: 059

REACTIONS (5)
  - Product use issue [Unknown]
  - Hypoaesthesia [Unknown]
  - Device deployment issue [Unknown]
  - Implant site pain [Unknown]
  - Implant site discolouration [Unknown]
